FAERS Safety Report 17927294 (Version 2)
Quarter: 2020Q3

REPORT INFORMATION
  Report Type: Spontaneous
  Country: US (occurrence: US)
  Receive Date: 20200623
  Receipt Date: 20200922
  Transmission Date: 20201103
  Serious: Yes (Hospitalization)
  Sender: FDA-Public Use
  Company Number: US-GLOBAL BLOOD THERAPEUTICS INC-US-GBT-20-00784

PATIENT
  Age: 30 Year
  Sex: Female

DRUGS (2)
  1. CALCIUM TABLETS [Concomitant]
     Indication: PRODUCT USED FOR UNKNOWN INDICATION
  2. OXBRYTA [Suspect]
     Active Substance: VOXELOTOR
     Indication: SICKLE CELL DISEASE
     Route: 048
     Dates: start: 20200115

REACTIONS (7)
  - Nausea [Unknown]
  - Malaise [Unknown]
  - Abdominal pain upper [Unknown]
  - Diarrhoea [Unknown]
  - Pyrexia [Recovered/Resolved]
  - Constipation [Unknown]
  - Abdominal pain [Unknown]

NARRATIVE: CASE EVENT DATE: 2020
